FAERS Safety Report 23357737 (Version 1)
Quarter: 2024Q1

REPORT INFORMATION
  Report Type: Spontaneous
  Country: US (occurrence: US)
  Receive Date: 20240102
  Receipt Date: 20240102
  Transmission Date: 20240410
  Serious: Yes (Other)
  Sender: FDA-Public Use
  Company Number: US-NOVOPROD-1155320

PATIENT
  Age: 39 Year
  Sex: Female
  Weight: 106.58 kg

DRUGS (1)
  1. NOVOLIN 70/30 [Suspect]
     Active Substance: INSULIN HUMAN
     Indication: Product used for unknown indication
     Dosage: 30 ML EVERY 12 HOURS
     Route: 058
     Dates: start: 20230722

REACTIONS (2)
  - Loss of consciousness [Unknown]
  - Ear infection [Unknown]

NARRATIVE: CASE EVENT DATE: 20231217
